FAERS Safety Report 25971016 (Version 2)
Quarter: 2025Q4

REPORT INFORMATION
  Report Type: Report from Study
  Country: BR (occurrence: BR)
  Receive Date: 20251028
  Receipt Date: 20251104
  Transmission Date: 20260117
  Serious: Yes (Other)
  Sender: NOVO NORDISK
  Company Number: BR-NOVOPROD-1546514

PATIENT
  Age: 76 Year
  Sex: Male
  Weight: 59 kg

DRUGS (3)
  1. FIASP [Suspect]
     Active Substance: INSULIN ASPART
     Indication: Type 1 diabetes mellitus
     Dosage: UNK
     Dates: start: 2023
  2. FIASP [Suspect]
     Active Substance: INSULIN ASPART
     Dosage: UNK (NEW BATCH)
     Route: 058
  3. FIASP [Suspect]
     Active Substance: INSULIN ASPART
     Dosage: UNK (DOSAGE USED IS NOT FIXED)
     Route: 058
     Dates: start: 202510

REACTIONS (4)
  - Blood glucose increased [Recovered/Resolved]
  - Device failure [Unknown]
  - Device mechanical issue [Recovered/Resolved]
  - Wrong technique in device usage process [Unknown]

NARRATIVE: CASE EVENT DATE: 20251015
